FAERS Safety Report 4952306-5 (Version None)
Quarter: 2006Q1

REPORT INFORMATION
  Report Type: 
  Country: None (occurrence: None)
  Receive Date: 20060320
  Receipt Date: 20060306
  Transmission Date: 20060701
  Serious: Yes (Death)
  Sender: FDA-Public Use
  Company Number: 06H-163-0306221-00

PATIENT
  Age: 53 Year
  Sex: Female

DRUGS (2)
  1. ENDRATE [Suspect]
     Indication: METAL POISONING
     Dosage: 700 MG, INTRAVENOUS
     Route: 042
     Dates: start: 20030801, end: 20030801
  2. ENDRATE [Suspect]
     Indication: METAL POISONING

REACTIONS (5)
  - ARRHYTHMIA [None]
  - CARDIOMYOPATHY [None]
  - HYPOCALCAEMIA [None]
  - LOSS OF CONSCIOUSNESS [None]
  - THERAPY NON-RESPONDER [None]
